FAERS Safety Report 19173193 (Version 1)
Quarter: 2021Q2

REPORT INFORMATION
  Report Type: Spontaneous
  Country: US (occurrence: US)
  Receive Date: 20210422
  Receipt Date: 20210422
  Transmission Date: 20210717
  Serious: No
  Sender: FDA-Public Use
  Company Number: None

PATIENT
  Age: 67 Year
  Sex: Female

DRUGS (6)
  1. GANIRELIX (GENERIC) [Concomitant]
  2. FORTEO [Suspect]
     Active Substance: TERIPARATIDE
     Indication: PRODUCT USED FOR UNKNOWN INDICATION
     Dosage: 0.8ML (20MCG) QD SQ?
     Route: 048
     Dates: start: 20210302
  3. LEUPROLIDE [Concomitant]
     Active Substance: LEUPROLIDE
  4. MENOPUR [Concomitant]
     Active Substance: FOLLITROPIN\LUTEINIZING HORMONE
  5. MILI [Concomitant]
     Active Substance: ETHINYL ESTRADIOL\NORGESTIMATE
  6. HCG 100000 [Concomitant]

REACTIONS (1)
  - Multiple fractures [None]

NARRATIVE: CASE EVENT DATE: 20201012
